FAERS Safety Report 6892373-5 (Version None)
Quarter: 2010Q3

REPORT INFORMATION
  Report Type: 
  Country: None (occurrence: None)
  Receive Date: 20100731
  Receipt Date: 20080409
  Transmission Date: 20110219
  Serious: No
  Sender: FDA-Public Use
  Company Number: US-PFIZER INC-2008032054

PATIENT
  Sex: Female
  Weight: 68.2 kg

DRUGS (5)
  1. NORVASC [Suspect]
     Indication: HYPERTENSION
     Dates: start: 20080301
  2. PREMPRO [Concomitant]
  3. TRAZODONE [Concomitant]
  4. RESTORIL [Concomitant]
  5. DIOVAN HCT [Concomitant]

REACTIONS (1)
  - COUGH [None]
